FAERS Safety Report 15230917 (Version 2)
Quarter: 2018Q4

REPORT INFORMATION
  Report Type: Spontaneous
  Country: DE (occurrence: DE)
  Receive Date: 20180802
  Receipt Date: 20181011
  Transmission Date: 20190204
  Serious: Yes (Hospitalization)
  Sender: FDA-Public Use
  Company Number: DE-ROCHE-2162803

PATIENT
  Age: 26 Year
  Sex: Male
  Weight: 85 kg

DRUGS (1)
  1. OCREVUS [Suspect]
     Active Substance: OCRELIZUMAB
     Indication: MULTIPLE SCLEROSIS
     Dosage: 1ST DOSE?SECOND DOSE ON 16/JUL/2018
     Route: 042
     Dates: start: 20180702

REACTIONS (3)
  - Multiple sclerosis [Recovering/Resolving]
  - Influenza like illness [Recovering/Resolving]
  - Monoparesis [Unknown]

NARRATIVE: CASE EVENT DATE: 20180718
